FAERS Safety Report 9402687 (Version 2)
Quarter: 2013Q3

REPORT INFORMATION
  Report Type: Spontaneous
  Country: DK (occurrence: IT)
  Receive Date: 20130716
  Receipt Date: 20130802
  Transmission Date: 20140515
  Serious: Yes (Hospitalization)
  Sender: FDA-Public Use
  Company Number: IT-FRI-1000046681

PATIENT
  Age: 86 Year
  Sex: Female

DRUGS (9)
  1. ESCITALOPRAM ORAL SOLUTION [Suspect]
     Dosage: 17 DROPS
     Route: 048
     Dates: start: 20130515, end: 20130628
  2. SERENASE [Suspect]
     Dosage: 1 MG
     Route: 048
     Dates: start: 20130515, end: 20130628
  3. BISPROLOL FUMARATE [Concomitant]
  4. ISOPTIN [Concomitant]
  5. METFORMIN [Concomitant]
  6. COUMADIN [Concomitant]
     Route: 048
  7. DIBASE [Concomitant]
  8. TAVOR [Concomitant]
     Route: 048
  9. NEXIUM [Concomitant]

REACTIONS (4)
  - Electrocardiogram QT prolonged [Recovered/Resolved]
  - Hyponatraemia [Recovered/Resolved]
  - Hypotension [Recovered/Resolved]
  - Sopor [Recovered/Resolved]
